FAERS Safety Report 4645595-8 (Version None)
Quarter: 2005Q2

REPORT INFORMATION
  Report Type: 
  Country: None (occurrence: None)
  Receive Date: 20050331
  Receipt Date: 20050117
  Transmission Date: 20051028
  Serious: No
  Sender: FDA-Public Use
  Company Number: 05P-163-0286935-00

PATIENT
  Age: 71 Year
  Sex: Female

DRUGS (5)
  1. HUMIRA [Suspect]
     Indication: RHEUMATOID ARTHRITIS
     Dosage: 40 MG, 1IN 2 WK, SUBCUTANEOUS
     Route: 058
     Dates: start: 20040601
  2. METHOTREXATE SODIUM [Concomitant]
  3. METHYLPREDNISOLONE [Concomitant]
  4. THYROID PILL [Concomitant]
  5. BLOOD PRESSURE MEDICATIONS [Concomitant]

REACTIONS (2)
  - BASAL CELL CARCINOMA [None]
  - HEPATIC ENZYME INCREASED [None]
